FAERS Safety Report 9069735 (Version 1)
Quarter: 2013Q1

REPORT INFORMATION
  Report Type: Report from Study
  Country: FR (occurrence: FR)
  Receive Date: 20130215
  Receipt Date: 20130215
  Transmission Date: 20140127
  Serious: Yes (Hospitalization, Other)
  Sender: FDA-Public Use
  Company Number: FR-GILEAD-2013-0069769

PATIENT
  Age: 44 Year
  Sex: Male

DRUGS (13)
  1. EMTRICITABINE/TENOFOVIR DISOPROXIL FUMARATE [Suspect]
     Indication: HIV INFECTION
     Dosage: 1 DF, QD
     Route: 048
     Dates: start: 20120705, end: 20120710
  2. EMTRICITABINE/TENOFOVIR DISOPROXIL FUMARATE [Suspect]
     Dosage: 2 DF, QD
     Route: 048
     Dates: start: 20120713, end: 20120717
  3. MALOCIDE [Suspect]
     Indication: TOXOPLASMOSIS
     Dosage: 100 MG, QD
     Dates: start: 20120701, end: 20120717
  4. LEDERFOLINE [Suspect]
     Indication: PRODUCT USED FOR UNKNOWN INDICATION
     Dosage: UNK
     Dates: start: 20120705
  5. CELSENTRI [Suspect]
     Indication: HIV INFECTION
     Dosage: UNK, BID
     Dates: start: 20120705, end: 20120707
  6. CELSENTRI [Suspect]
     Dosage: UNK
     Dates: start: 20120713, end: 20120717
  7. REYATAZ [Suspect]
     Indication: HIV INFECTION
     Dosage: 300 MG, QD
     Dates: start: 20120705, end: 20120709
  8. NORVIR [Suspect]
     Indication: HIV INFECTION
     Dosage: 100 MG, QD
     Dates: start: 20120705, end: 20120709
  9. PENTACARINAT [Suspect]
     Indication: PRODUCT USED FOR UNKNOWN INDICATION
     Dosage: UNK
     Dates: start: 20120623, end: 20120717
  10. ISENTRESS [Suspect]
     Indication: HIV INFECTION
     Dosage: 400 MG, BID
     Dates: start: 20120713, end: 20120717
  11. METRONIDAZOLE [Concomitant]
     Indication: GIARDIASIS
  12. FUNGIZONE [Concomitant]
     Indication: APHTHOUS STOMATITIS
  13. ZELITREX [Concomitant]
     Indication: APHTHOUS STOMATITIS

REACTIONS (12)
  - Toxic skin eruption [Unknown]
  - Seborrhoeic dermatitis [Unknown]
  - Pancytopenia [Recovering/Resolving]
  - Enanthema [Recovering/Resolving]
  - Skin exfoliation [Unknown]
  - Nausea [Recovered/Resolved]
  - Fatigue [Unknown]
  - Diarrhoea [Recovered/Resolved]
  - Jaundice [Recovered/Resolved]
  - Hyperbilirubinaemia [Unknown]
  - Rash generalised [Recovering/Resolving]
  - Pruritus [Recovering/Resolving]
